FAERS Safety Report 24691196 (Version 1)
Quarter: 2024Q4

REPORT INFORMATION
  Report Type: Spontaneous
  Country: US (occurrence: None)
  Receive Date: 20241202
  Receipt Date: 20241202
  Transmission Date: 20250115
  Serious: Yes (Other)
  Sender: Public
  Company Number: None

PATIENT
  Age: 72 Year
  Sex: Male
  Weight: 86.35 kg

DRUGS (2)
  1. LEQEMBI [Suspect]
     Active Substance: LECANEMAB-IRMB
     Indication: Cognitive disorder
     Dosage: 870 MG E ERY 2 WEEKS INTRAVENOUS?
     Route: 042
  2. LEQEMBI [Concomitant]
     Active Substance: LECANEMAB-IRMB
     Dates: start: 20241125

REACTIONS (4)
  - Vomiting [None]
  - Cold sweat [None]
  - Fatigue [None]
  - Chills [None]

NARRATIVE: CASE EVENT DATE: 20241126
